FAERS Safety Report 20712034 (Version 3)
Quarter: 2022Q3

REPORT INFORMATION
  Report Type: Spontaneous
  Country: US (occurrence: US)
  Receive Date: 20220414
  Receipt Date: 20220824
  Transmission Date: 20221027
  Serious: No
  Sender: FDA-Public Use
  Company Number: US-PFIZER INC-202200240665

PATIENT
  Age: 66 Year
  Sex: Female

DRUGS (1)
  1. XELJANZ XR [Suspect]
     Active Substance: TOFACITINIB CITRATE
     Dosage: 11 MG
     Dates: end: 202204

REACTIONS (5)
  - Pain in extremity [Unknown]
  - Hypertension [Unknown]
  - Psoriasis [Unknown]
  - Product dose omission issue [Unknown]
  - Product dispensing issue [Unknown]
